FAERS Safety Report 4890579-8 (Version None)
Quarter: 2006Q1

REPORT INFORMATION
  Report Type: 
  Country: None (occurrence: None)
  Receive Date: 20060122
  Receipt Date: 20060111
  Transmission Date: 20060701
  Serious: Yes (Other)
  Sender: FDA-Public Use
  Company Number: 163-20785-06010232

PATIENT
  Sex: Male

DRUGS (2)
  1. THALOMID [Suspect]
     Indication: MULTIPLE MYELOMA
     Dosage: 200 MG, DAILY,  ORAL
     Route: 048
     Dates: start: 20051216
  2. THALOMID [Suspect]

REACTIONS (3)
  - AMMONIA INCREASED [None]
  - BLOOD SODIUM DECREASED [None]
  - HEPATIC FAILURE [None]
